FAERS Safety Report 8480778-0 (Version None)
Quarter: 2012Q2

REPORT INFORMATION
  Report Type: 
  Country: None (occurrence: None)
  Receive Date: 20120619
  Receipt Date: 20120607
  Transmission Date: 20120825
  Serious: Yes (Other)
  Sender: FDA-Public Use
  Company Number: DSA_57854_2012

PATIENT

DRUGS (2)
  1. CEFTRIAXONE [Suspect]
     Indication: ABDOMINAL INFECTION
     Dosage: (2G DAILY INTRAVENOUS (NOT OTHERWISE SPECIFIED)
     Route: 042
  2. METRONIDAZOLE [Suspect]
     Indication: ABDOMINAL INFECTION
     Dosage: (1G TO 2G DAILY DIVIDED INTO MULTIPLE DOSES)

REACTIONS (1)
  - PNEUMONIA [None]
